FAERS Safety Report 8625012-3 (Version None)
Quarter: 2012Q3

REPORT INFORMATION
  Report Type: 
  Country: None (occurrence: None)
  Receive Date: 20120827
  Receipt Date: 20120826
  Transmission Date: 20120928
  Serious: Yes (Other)
  Sender: FDA-Public Use
  Company Number: IL-PFIZER INC-2012200382

PATIENT
  Age: 80 Year
  Sex: Male

DRUGS (4)
  1. IKAPRESS [Concomitant]
     Indication: ATRIAL FIBRILLATION
  2. PRADAXA [Concomitant]
     Indication: HEART RATE IRREGULAR
  3. GLUCOPHAGE [Concomitant]
     Indication: DIABETES MELLITUS
  4. LIPITOR [Suspect]
     Indication: BLOOD CHOLESTEROL INCREASED
     Dosage: 10 MG, 1X/DAY
     Route: 048

REACTIONS (5)
  - GAIT DISTURBANCE [None]
  - PARKINSONIAN GAIT [None]
  - NEUROPATHY PERIPHERAL [None]
  - PAIN [None]
  - LOCALISED INFECTION [None]
